FAERS Safety Report 12216309 (Version 1)
Quarter: 2016Q1

REPORT INFORMATION
  Report Type: Spontaneous
  Country: CN (occurrence: CN)
  Receive Date: 20160329
  Receipt Date: 20160329
  Transmission Date: 20160526
  Serious: Yes (Other)
  Sender: FDA-Public Use
  Company Number: CN-ALVOGEN-2016-ALVOGEN-023194

PATIENT
  Age: 74 Year
  Sex: Male

DRUGS (10)
  1. DACARBAZINE. [Concomitant]
     Active Substance: DACARBAZINE
     Indication: WALDENSTROM^S MACROGLOBULINAEMIA
     Dates: start: 201106
  2. BLEOMYCIN [Concomitant]
     Active Substance: BLEOMYCIN SULFATE
     Indication: HODGKIN^S DISEASE
     Dates: start: 201106
  3. DACARBAZINE. [Concomitant]
     Active Substance: DACARBAZINE
     Indication: HODGKIN^S DISEASE
     Dates: start: 201106
  4. VINBLASTINE [Concomitant]
     Active Substance: VINBLASTINE
     Indication: HODGKIN^S DISEASE
     Dates: start: 201106
  5. BLEOMYCIN [Concomitant]
     Active Substance: BLEOMYCIN SULFATE
     Dates: start: 201106
  6. DOXORUBICIN [Suspect]
     Active Substance: DOXORUBICIN
     Indication: HODGKIN^S DISEASE
     Dosage: DOSE WAS REDUCED BY 75%
     Dates: start: 201106
  7. VINBLASTINE [Concomitant]
     Active Substance: VINBLASTINE
     Indication: WALDENSTROM^S MACROGLOBULINAEMIA
     Dates: start: 201106
  8. OXALIPLATIN. [Suspect]
     Active Substance: OXALIPLATIN
     Indication: CHEMOTHERAPY
  9. DECITABINE. [Suspect]
     Active Substance: DECITABINE
     Indication: CHEMOTHERAPY
  10. DOXORUBICIN [Suspect]
     Active Substance: DOXORUBICIN
     Indication: WALDENSTROM^S MACROGLOBULINAEMIA
     Dosage: DOSE WAS REDUCED BY 75%
     Dates: start: 201106

REACTIONS (2)
  - Drug ineffective [Unknown]
  - Supraventricular extrasystoles [Unknown]
